FAERS Safety Report 24591678 (Version 1)
Quarter: 2024Q4

REPORT INFORMATION
  Report Type: Spontaneous
  Country: CN (occurrence: CN)
  Receive Date: 20241108
  Receipt Date: 20241108
  Transmission Date: 20250115
  Serious: Yes (Hospitalization, Other)
  Sender: SANOFI AVENTIS
  Company Number: CN-SA-2024SA319101

PATIENT
  Age: 89 Year
  Sex: Female
  Weight: 52 kg

DRUGS (2)
  1. CLOPIDOGREL BISULFATE [Suspect]
     Active Substance: CLOPIDOGREL BISULFATE
     Indication: Arteriosclerosis coronary artery
     Dosage: 75 MG, QD
     Route: 048
     Dates: start: 20240915, end: 20241027
  2. ASPIRIN\DIHYDROXYALUMINUM AMINOACETATE\MAGNESIUM CARBONATE [Suspect]
     Active Substance: ASPIRIN\DIHYDROXYALUMINUM AMINOACETATE\MAGNESIUM CARBONATE
     Indication: Arteriosclerosis coronary artery
     Dosage: 1 DF, QD
     Route: 048
     Dates: start: 20240915, end: 20241027

REACTIONS (3)
  - Asthenia [Recovering/Resolving]
  - Dizziness [Recovered/Resolved]
  - Melaena [Recovered/Resolved]

NARRATIVE: CASE EVENT DATE: 20241027
